FAERS Safety Report 19706657 (Version 9)
Quarter: 2021Q3

REPORT INFORMATION
  Report Type: Report from Study
  Country: US (occurrence: CN)
  Receive Date: 20210817
  Receipt Date: 20210917
  Transmission Date: 20211014
  Serious: Yes (Death, Life-Threatening, Hospitalization)
  Sender: FDA-Public Use
  Company Number: CN-ELI_LILLY_AND_COMPANY-CN202107001009

PATIENT
  Age: 51 Year
  Sex: Male
  Weight: 63.5 kg

DRUGS (53)
  1. PEMETREXED. [Suspect]
     Active Substance: PEMETREXED
     Dosage: 500 MG, CYCLICAL (EVERY 3 WEEKS)
     Route: 042
     Dates: start: 20210708, end: 20210708
  2. PEMBROLIZUMAB. [Concomitant]
     Active Substance: PEMBROLIZUMAB
     Dosage: 200 MG, CYCLICAL (EVERY 3 WEEKS)
     Route: 042
     Dates: start: 20210708, end: 20210708
  3. CARBOPLATIN. [Concomitant]
     Active Substance: CARBOPLATIN
     Dosage: 5 MG/ML/MIN, CYCLICAL (EVERY 3 WEEKS)
     Route: 042
     Dates: start: 20210708, end: 20210708
  4. DEXAMETHASONE ACETATE [Concomitant]
     Active Substance: DEXAMETHASONE ACETATE
     Indication: PRODUCT USED FOR UNKNOWN INDICATION
     Dosage: 3.75 MG
     Route: 065
     Dates: start: 20210614, end: 20210616
  5. PALONOSETRON HYDROCHLORIDE. [Concomitant]
     Active Substance: PALONOSETRON HYDROCHLORIDE
     Indication: PROPHYLAXIS OF NAUSEA AND VOMITING
     Dosage: 0.25 MG, UNKNOWN
     Route: 042
     Dates: start: 20210615, end: 20210616
  6. GLUTATHIONE REDUCED [Concomitant]
     Indication: PROPHYLAXIS
     Dosage: UNK, UNKNOWN
  7. TORASEMIDE [Concomitant]
     Active Substance: TORSEMIDE
     Indication: POLYURIA
     Dosage: UNK, UNKNOWN
     Route: 065
  8. ACETYLCYSTEINE. [Concomitant]
     Active Substance: ACETYLCYSTEINE
     Indication: ASTHMA
  9. ESTAZOLAM. [Concomitant]
     Active Substance: ESTAZOLAM
     Indication: ANXIETY
  10. POTASSIUM CHLORIDE. [Concomitant]
     Active Substance: POTASSIUM CHLORIDE
     Indication: MINERAL SUPPLEMENTATION
     Dosage: UNK UNK, UNKNOWN
     Route: 065
  11. FOSAPREPITANT DIMEGLUMINE. [Concomitant]
     Active Substance: FOSAPREPITANT DIMEGLUMINE
     Indication: PROPHYLAXIS OF NAUSEA AND VOMITING
     Dosage: 0.15 MG, UNKNOWN
     Route: 042
     Dates: start: 20210615, end: 20210615
  12. FUROSEMIDE SODIUM [Concomitant]
     Active Substance: FUROSEMIDE SODIUM
     Indication: PRODUCT USED FOR UNKNOWN INDICATION
     Dosage: UNK, UNKNOWN
     Route: 065
  13. METHYLPREDNISOLONE. [Concomitant]
     Active Substance: METHYLPREDNISOLONE
     Indication: HORMONE THERAPY
     Dosage: UNK UNK, UNKNOWN
     Route: 065
  14. FOLIC ACID. [Concomitant]
     Active Substance: FOLIC ACID
     Indication: PRODUCT USED FOR UNKNOWN INDICATION
     Dosage: 0.4 MG
     Route: 065
     Dates: start: 20210510
  15. DIPHENHYDRAMINE. [Concomitant]
     Active Substance: DIPHENHYDRAMINE
     Indication: ALLERGY PROPHYLAXIS
     Dosage: UNK, UNKNOWN
     Route: 065
  16. CEFOPERAZONE SODIUM [Concomitant]
     Active Substance: CEFOPERAZONE SODIUM
     Indication: INFECTION
     Dosage: UNK, UNKNOWN
     Route: 065
  17. KANG FU XIN [Concomitant]
     Indication: OROPHARYNGEAL PAIN
     Dosage: 10 ML, UNKNOWN
     Dates: start: 20210712
  18. CETYLPYRIDINIUM CHLORIDE. [Concomitant]
     Active Substance: CETYLPYRIDINIUM CHLORIDE
     Indication: OROPHARYNGEAL PAIN
     Route: 065
  19. PEMETREXED. [Suspect]
     Active Substance: PEMETREXED
     Indication: NON-SMALL CELL LUNG CANCER METASTATIC
     Dosage: 500 MG, CYCLICAL (EVERY 3 WEEKS)
     Route: 042
     Dates: start: 20210615, end: 20210615
  20. CARBOPLATIN. [Concomitant]
     Active Substance: CARBOPLATIN
     Indication: NON-SMALL CELL LUNG CANCER METASTATIC
     Dosage: 5 MG/ML/MIN, CYCLICAL (EVERY 3 WEEKS)
     Route: 042
     Dates: start: 20210615, end: 20210615
  21. METOCLOPRAMIDE HYDROCHLORIDE. [Concomitant]
     Active Substance: METOCLOPRAMIDE HYDROCHLORIDE
     Indication: PRODUCT USED FOR UNKNOWN INDICATION
     Dosage: 20 MG, UNKNOWN
     Route: 042
     Dates: start: 20210615, end: 20210616
  22. SODIUM BICARBONATE. [Concomitant]
     Active Substance: SODIUM BICARBONATE
     Indication: BLOOD URIC ACID INCREASED
     Dosage: UNK, UNKNOWN
     Route: 065
  23. CETYLPYRIDINIUM [Concomitant]
     Active Substance: CETYLPYRIDINIUM
     Indication: OROPHARYNGEAL PAIN
     Dosage: UNK, UNKNOWN
     Route: 065
  24. SODIUM CHLORIDE. [Concomitant]
     Active Substance: SODIUM CHLORIDE
     Indication: ELECTROLYTE SUBSTITUTION THERAPY
     Dosage: UNK UNK, UNKNOWN
     Route: 065
  25. ALBUMIN HUMAN [Concomitant]
     Active Substance: ALBUMIN HUMAN
     Indication: VOLUME BLOOD INCREASED
     Dosage: UNK UNK, UNKNOWN
     Route: 065
  26. DIPHENHYDRAMINE HYDROCHLORIDE. [Concomitant]
     Active Substance: DIPHENHYDRAMINE HYDROCHLORIDE
     Indication: PRODUCT USED FOR UNKNOWN INDICATION
     Dosage: 20 MG, UNKNOWN
     Route: 042
     Dates: start: 20210615, end: 20210616
  27. GRANISETRON HYDROCHLORIDE. [Concomitant]
     Active Substance: GRANISETRON HYDROCHLORIDE
     Indication: PRODUCT USED FOR UNKNOWN INDICATION
     Dosage: 1 MG, UNKNOWN
     Route: 065
     Dates: start: 20210616
  28. DEXAMETHASONE. [Concomitant]
     Active Substance: DEXAMETHASONE
     Indication: CHEMOTHERAPY SIDE EFFECT PROPHYLAXIS
     Dosage: UNK, UNKNOWN
     Route: 065
  29. INDOMETHACIN [INDOMETACIN] [Concomitant]
     Active Substance: INDOMETHACIN
     Indication: HYPOTHERMIA
     Dosage: UNK, UNKNOWN
     Route: 065
  30. CORDYCEPS [Concomitant]
     Active Substance: HERBALS
     Indication: RENAL DISORDER
     Dosage: 0.5 G, UNKNOWN
     Dates: start: 20210710
  31. COMPOUND SODIUM CHLORIDE [CALCIUM CHLORIDE;PO [Concomitant]
     Indication: FLUID REPLACEMENT
     Dosage: UNK UNK, UNKNOWN
     Route: 065
  32. NIFEDIPINE. [Concomitant]
     Active Substance: NIFEDIPINE
     Indication: BLOOD PRESSURE MEASUREMENT
     Route: 065
  33. PEMBROLIZUMAB. [Concomitant]
     Active Substance: PEMBROLIZUMAB
     Indication: NON-SMALL CELL LUNG CANCER METASTATIC
     Dosage: 200 MG, CYCLICAL (EVERY 3 WEEKS)
     Route: 042
     Dates: start: 20210615, end: 20210615
  34. MAGNESIUM ISOGLYCYRRHIZINATE [Concomitant]
     Active Substance: MAGNESIUM ISOGLYCYRRHIZINATE
     Indication: PROPHYLAXIS
     Dosage: 100 MG, UNKNOWN
     Route: 042
     Dates: start: 20210615, end: 20210616
  35. OMEPRAZOLE SODIUM [Concomitant]
     Active Substance: OMEPRAZOLE SODIUM
     Indication: PROPHYLAXIS
     Dosage: UNK MG, 40
     Route: 065
     Dates: start: 20210615, end: 20210616
  36. DEXTROSE AND SODIUM CHLORIDE [Concomitant]
     Active Substance: DEXTROSE MONOHYDRATE\SODIUM CHLORIDE
     Indication: PRODUCT USED FOR UNKNOWN INDICATION
     Dosage: UNK, UNKNOWN
     Route: 065
  37. ASPIRIN LYSINE [Concomitant]
     Active Substance: ASPIRIN LYSINE
     Indication: PRODUCT USED FOR UNKNOWN INDICATION
     Dosage: UNK, UNKNOWN
     Route: 065
  38. ACETYLCYSTEINE. [Concomitant]
     Active Substance: ACETYLCYSTEINE
     Indication: PRODUCTIVE COUGH
     Dosage: UNK UNK, UNKNOWN
     Route: 065
  39. ESTAZOLAM. [Concomitant]
     Active Substance: ESTAZOLAM
     Indication: INSOMNIA
  40. TORSEMIDE. [Concomitant]
     Active Substance: TORSEMIDE
     Indication: PRODUCT USED FOR UNKNOWN INDICATION
     Dosage: 20 MG
     Route: 065
     Dates: start: 20210615, end: 20210616
  41. PROMETHAZINE [Concomitant]
     Active Substance: PROMETHAZINE HYDROCHLORIDE
     Indication: PROPHYLAXIS OF NAUSEA AND VOMITING
  42. ALLOPURINOL. [Concomitant]
     Active Substance: ALLOPURINOL
     Indication: HYPERURICAEMIA
     Dosage: UNK, UNKNOWN
     Route: 065
  43. ANISODAMINE HYDROCHLORIDE [Concomitant]
     Indication: PRODUCT USED FOR UNKNOWN INDICATION
     Dosage: UNK, UNKNOWN
  44. CALCIUM GLUCONATE. [Concomitant]
     Active Substance: CALCIUM GLUCONATE
     Indication: BLOOD POTASSIUM INCREASED
     Dosage: UNK, UNKNOWN
     Route: 065
  45. INSULIN [Concomitant]
     Active Substance: INSULIN NOS
     Indication: BLOOD POTASSIUM DECREASED
     Dosage: 8 DOSAGE FORM, UNKNOWN
     Route: 065
     Dates: start: 20210709, end: 20210709
  46. AMERICAN COCKROACH [Concomitant]
     Active Substance: PERIPLANETA AMERICANA
     Indication: OROPHARYNGEAL PAIN
     Dosage: UNK
     Route: 065
     Dates: start: 20210712
  47. NYSTATIN. [Concomitant]
     Active Substance: NYSTATIN
     Indication: CANDIDA INFECTION
     Dosage: UNK UNK, UNKNOWN
     Route: 065
  48. LENVATINIB MESYLATE [Concomitant]
     Active Substance: LENVATINIB MESYLATE
     Indication: NON-SMALL CELL LUNG CANCER METASTATIC
     Dosage: 8 MG, DAILY
     Route: 048
     Dates: start: 20210615, end: 20210615
  49. LENVATINIB MESYLATE [Concomitant]
     Active Substance: LENVATINIB MESYLATE
     Dosage: 8 MG, DAILY
     Route: 048
     Dates: start: 20210616, end: 20210626
  50. TROPISETRON [Concomitant]
     Active Substance: TROPISETRON
     Indication: NAUSEA
     Dosage: UNK, UNKNOWN
     Route: 065
  51. DEXAMETHASONE SODIUM PHOSPHATE. [Concomitant]
     Active Substance: DEXAMETHASONE SODIUM PHOSPHATE
     Indication: PRODUCT USED FOR UNKNOWN INDICATION
     Dosage: UNK, UNKNOWN
     Route: 065
  52. ADEMETIONINE 1,4?BUTANEDISULFONATE [Concomitant]
     Active Substance: ADEMETIONINE BUTANEDISULFONATE
     Indication: HEPATIC PAIN
     Dosage: UNK UNK, UNKNOWN
     Route: 065
  53. LACTULOSE. [Concomitant]
     Active Substance: LACTULOSE
     Indication: FEELING OF RELAXATION
     Dosage: UNK UNK, UNKNOWN
     Route: 065

REACTIONS (10)
  - Gastrointestinal haemorrhage [Recovering/Resolving]
  - Blood creatinine increased [Recovering/Resolving]
  - Candida infection [Not Recovered/Not Resolved]
  - Sepsis [Fatal]
  - Platelet count decreased [Recovered/Resolved]
  - Platelet count decreased [Not Recovered/Not Resolved]
  - Febrile neutropenia [Recovering/Resolving]
  - White blood cell count decreased [Recovered/Resolved]
  - Febrile neutropenia [Recovered/Resolved]
  - White blood cell count decreased [Recovering/Resolving]

NARRATIVE: CASE EVENT DATE: 20210625
